FAERS Safety Report 22348182 (Version 1)
Quarter: 2023Q2

REPORT INFORMATION
  Report Type: Spontaneous
  Country: US (occurrence: None)
  Receive Date: 20230522
  Receipt Date: 20230522
  Transmission Date: 20230721
  Serious: Yes (Hospitalization)
  Sender: FDA-Public Use
  Company Number: 2023A115254

PATIENT
  Age: 30031 Day
  Sex: Female
  Weight: 80.7 kg

DRUGS (1)
  1. BEVESPI AEROSPHERE [Suspect]
     Active Substance: FORMOTEROL FUMARATE\GLYCOPYRROLATE
     Indication: Chronic obstructive pulmonary disease
     Route: 055

REACTIONS (6)
  - Cerebrovascular accident [Unknown]
  - Visual impairment [Unknown]
  - Memory impairment [Unknown]
  - Wrong technique in device usage process [Unknown]
  - Device use issue [Unknown]
  - Product use issue [Unknown]

NARRATIVE: CASE EVENT DATE: 20230401
